FAERS Safety Report 6088487-2 (Version None)
Quarter: 2009Q1

REPORT INFORMATION
  Report Type: 
  Country: None (occurrence: None)
  Receive Date: 20090219
  Receipt Date: 20090212
  Transmission Date: 20090719
  Serious: Yes (Life-Threatening, Hospitalization)
  Sender: FDA-Public Use
  Company Number: 2008SP026245

PATIENT
  Age: 58 Year
  Sex: Male
  Weight: 72.6 kg

DRUGS (11)
  1. BOCEPREVIR (SCH 503034) [Suspect]
     Indication: HEPATITIS C
     Dosage: 2400 MG QD PO
     Route: 048
     Dates: start: 20081029
  2. BOCEPREVIR (SCH 503034) [Suspect]
  3. BOCEPREVIR (SCH 503034) [Suspect]
  4. PEG-INTRON [Suspect]
     Indication: HEPATITIS C
     Dosage: 120 MCG;QW;SC
     Route: 058
     Dates: start: 20081001
  5. RIBAVIRIN [Suspect]
     Indication: HEPATITIS C
     Dosage: 1000 MG;QD;PO
     Route: 048
     Dates: start: 20081001
  6. MULTI-VITAMIN [Concomitant]
  7. ACETAMINOPHEN W/ CODEINE TAB [Concomitant]
  8. IBUPROFEN TABLETS [Concomitant]
  9. EPREX [Concomitant]
  10. PERCOCET [Concomitant]
  11. ELOCON [Concomitant]

REACTIONS (15)
  - ANAEMIA [None]
  - CONFUSIONAL STATE [None]
  - DIARRHOEA [None]
  - DYSPNOEA [None]
  - EPIGLOTTITIS [None]
  - ESCHERICHIA SEPSIS [None]
  - FEBRILE NEUTROPENIA [None]
  - HAEMOPTYSIS [None]
  - HEADACHE [None]
  - LOCAL SWELLING [None]
  - NAUSEA [None]
  - PHARYNGITIS [None]
  - RENAL FAILURE ACUTE [None]
  - VOMITING [None]
  - WHITE BLOOD CELL COUNT DECREASED [None]
